FAERS Safety Report 5470599-5 (Version None)
Quarter: 2007Q3

REPORT INFORMATION
  Report Type: 
  Country: None (occurrence: None)
  Receive Date: 20070928
  Receipt Date: 20070918
  Transmission Date: 20080115
  Serious: Yes (Other)
  Sender: FDA-Public Use
  Company Number: PHHO2007JP14364

PATIENT
  Age: 78 Year
  Sex: Male

DRUGS (6)
  1. DIOVAN [Suspect]
     Indication: HYPERTENSION
     Dosage: 80 MG, QD
     Route: 048
     Dates: start: 20030606
  2. PROCYLIN [Concomitant]
     Indication: ARTERIOSCLEROSIS OBLITERANS
  3. LASIX [Concomitant]
     Indication: CARDIAC FAILURE
  4. DOGMATYL [Concomitant]
     Indication: DEPRESSION
  5. ITOROL [Concomitant]
     Indication: ANGINA PECTORIS
  6. FRANDOL [Concomitant]
     Indication: ANGINA PECTORIS

REACTIONS (5)
  - ANGINA PECTORIS [None]
  - CHEST PAIN [None]
  - CORONARY ARTERY STENOSIS [None]
  - ELECTROCARDIOGRAM ST SEGMENT DEPRESSION [None]
  - PERCUTANEOUS CORONARY INTERVENTION [None]
